FAERS Safety Report 5750137-X (Version None)
Quarter: 2008Q2

REPORT INFORMATION
  Report Type: 
  Country: None (occurrence: None)
  Receive Date: 20080522
  Receipt Date: 20080522
  Transmission Date: 20081010
  Serious: Yes (Life-Threatening)
  Sender: FDA-Public Use
  Company Number: None

PATIENT
  Age: 54 Year
  Sex: Female
  Weight: 68.0396 kg

DRUGS (1)
  1. SUBLINGUAL ALLERGEN EXTRACT, MADE LOCALLY BY AN ENT DOCTOR [Suspect]
     Indication: RHINITIS ALLERGIC
     Dosage: DAILY ORAL
     Route: 048
     Dates: start: 20080428, end: 20080505

REACTIONS (1)
  - ANAPHYLACTIC REACTION [None]
